FAERS Safety Report 9992864 (Version 1)
Quarter: 2014Q1

REPORT INFORMATION
  Report Type: Spontaneous
  Country: US (occurrence: US)
  Receive Date: 20140310
  Receipt Date: 20140310
  Transmission Date: 20141002
  Serious: No
  Sender: FDA-Public Use
  Company Number: US-ABBVIE-13P-163-1082122-00

PATIENT
  Age: 47 Year
  Sex: Female
  Weight: 55.39 kg

DRUGS (1)
  1. LUPRON DEPOT [Suspect]
     Indication: UTERINE LEIOMYOMA
     Dates: start: 20121215, end: 201303

REACTIONS (6)
  - Abdominal distension [Recovering/Resolving]
  - Feeling abnormal [Recovering/Resolving]
  - Mental impairment [Recovering/Resolving]
  - Middle insomnia [Recovering/Resolving]
  - Headache [Recovering/Resolving]
  - Hot flush [Recovering/Resolving]
